FAERS Safety Report 6674792-5 (Version None)
Quarter: 2010Q2

REPORT INFORMATION
  Report Type: 
  Country: None (occurrence: None)
  Receive Date: 20100409
  Receipt Date: 20100402
  Transmission Date: 20101027
  Serious: Yes (Other)
  Sender: FDA-Public Use
  Company Number: US-WYE-H00637007

PATIENT
  Sex: Female
  Weight: 63.56 kg

DRUGS (2)
  1. PREMARIN [Suspect]
  2. PROVERA [Suspect]

REACTIONS (1)
  - CONTRALATERAL BREAST CANCER [None]
